FAERS Safety Report 5258999-X (Version None)
Quarter: 2007Q1

REPORT INFORMATION
  Report Type: 
  Country: None (occurrence: None)
  Receive Date: 20070305
  Receipt Date: 20070216
  Transmission Date: 20070707
  Serious: Yes (Life-Threatening)
  Sender: FDA-Public Use
  Company Number: 2007RR-05948

PATIENT

DRUGS (1)
  1. IBUPROFEN [Suspect]

REACTIONS (3)
  - GASTROENTERITIS [None]
  - RENAL FAILURE ACUTE [None]
  - WEIGHT DECREASED [None]
